FAERS Safety Report 8533691-4 (Version None)
Quarter: 2012Q3

REPORT INFORMATION
  Report Type: 
  Country: None (occurrence: None)
  Receive Date: 20120724
  Receipt Date: 20120716
  Transmission Date: 20120928
  Serious: Yes (Hospitalization, Other)
  Sender: FDA-Public Use
  Company Number: DE-B.I. PHARMACEUTICALS,INC./RIDGEFIELD-2012-DE-01339DE

PATIENT
  Sex: Male
  Weight: 110 kg

DRUGS (3)
  1. BISOPROLOL FUMARATE [Concomitant]
     Indication: HYPERTENSION
     Dosage: 5 NR
  2. OLMESARTAN MEDOXOMIL [Concomitant]
     Indication: HYPERTENSION
     Dosage: 40 MG
  3. PRADAXA [Suspect]
     Indication: ATRIAL FIBRILLATION
     Dosage: 220 MG
     Dates: start: 20110701

REACTIONS (1)
  - CAROTID ARTERY THROMBOSIS [None]
